FAERS Safety Report 14422097 (Version 2)
Quarter: 2018Q3

REPORT INFORMATION
  Report Type: Report from Study
  Country: GB (occurrence: GB)
  Receive Date: 20180123
  Receipt Date: 20180907
  Transmission Date: 20181010
  Serious: Yes (Hospitalization, Other)
  Sender: FDA-Public Use
  Company Number: GB-UCBSA-2018001919

PATIENT
  Age: 35 Year
  Sex: Male

DRUGS (3)
  1. BRIVARACETAM [Suspect]
     Active Substance: BRIVARACETAM
     Indication: SEIZURE
     Dosage: 50 MG, 2X/DAY (BID)
     Route: 048
     Dates: start: 20171221, end: 20180108
  2. CODEINE [Concomitant]
     Active Substance: CODEINE
     Indication: PRODUCT USED FOR UNKNOWN INDICATION
     Dosage: 30 MG, AS NEEDED (PRN)
     Route: 048
  3. LAMOTRIGINE. [Concomitant]
     Active Substance: LAMOTRIGINE
     Indication: PRODUCT USED FOR UNKNOWN INDICATION
     Dosage: 200 MG, 2X/DAY (BID)
     Route: 048
     Dates: start: 2014

REACTIONS (2)
  - Seizure [Unknown]
  - Laceration [Recovered/Resolved with Sequelae]

NARRATIVE: CASE EVENT DATE: 201801
